FAERS Safety Report 5843875-1 (Version None)
Quarter: 2008Q3

REPORT INFORMATION
  Report Type: 
  Country: None (occurrence: None)
  Receive Date: 20080813
  Receipt Date: 20080804
  Transmission Date: 20090109
  Serious: Yes (Hospitalization)
  Sender: FDA-Public Use
  Company Number: US-AMGEN-QUU299348

PATIENT
  Sex: Male

DRUGS (2)
  1. ENBREL [Suspect]
     Indication: RHEUMATOID ARTHRITIS
     Route: 058
     Dates: start: 20080121
  2. REMICADE [Concomitant]
     Dates: start: 20080101

REACTIONS (8)
  - BRONCHOPNEUMONIA [None]
  - LARYNGEAL OEDEMA [None]
  - NASOPHARYNGITIS [None]
  - OEDEMA PERIPHERAL [None]
  - RASH [None]
  - RHEUMATOID ARTHRITIS [None]
  - SKIN EXFOLIATION [None]
  - SLEEP APNOEA SYNDROME [None]
